FAERS Safety Report 9995680 (Version 1)
Quarter: 2014Q1

REPORT INFORMATION
  Report Type: Spontaneous
  Country: US (occurrence: US)
  Receive Date: 20140311
  Receipt Date: 20140311
  Transmission Date: 20141002
  Serious: No
  Sender: FDA-Public Use
  Company Number: US-GALDERMA-US13003620

PATIENT
  Age: 19 Year
  Sex: Female

DRUGS (5)
  1. TRI-LUMA CREAM (FLUOCINOLONE ACETONIDE 0.01%, HYDROQUINONE 4%, TRETINO [Suspect]
     Indication: PIGMENTATION DISORDER
     Route: 061
     Dates: start: 201310
  2. TAZORAC (TAZAROTENE) CREAM OR GEL 0.1% [Concomitant]
     Indication: ACNE
     Route: 061
  3. AVAR (SULFACETAMIDE, SULFUR) [Concomitant]
     Indication: ACNE
     Route: 061
  4. OBAGI CLENZIDERM WITH SALICYLIC ACID [Concomitant]
     Indication: THERAPEUTIC SKIN CARE TOPICAL
     Route: 061
  5. OBAGI PORE THERAPY [Concomitant]
     Indication: THERAPEUTIC SKIN CARE TOPICAL
     Route: 061

REACTIONS (2)
  - Skin hypopigmentation [Not Recovered/Not Resolved]
  - Inappropriate schedule of drug administration [Not Recovered/Not Resolved]
